FAERS Safety Report 7515960-X (Version None)
Quarter: 2011Q2

REPORT INFORMATION
  Report Type: 
  Country: None (occurrence: None)
  Receive Date: 20110601
  Receipt Date: 20110517
  Transmission Date: 20111010
  Serious: Yes (Hospitalization)
  Sender: FDA-Public Use
  Company Number: US-JNJFOC-20110404464

PATIENT
  Sex: Female
  Weight: 124.29 kg

DRUGS (20)
  1. DURAGESIC-100 [Suspect]
     Indication: POST-TRAUMATIC PAIN
     Route: 062
     Dates: start: 20070101
  2. CYMBALTA [Concomitant]
     Indication: POST CONCUSSION SYNDROME
     Route: 048
  3. ABILIFY [Concomitant]
     Indication: POST CONCUSSION SYNDROME
     Route: 048
     Dates: end: 20110324
  4. PENICILLIN VK [Concomitant]
     Route: 048
     Dates: start: 20100614
  5. TOPAMAX [Suspect]
     Indication: ANXIETY
     Route: 048
     Dates: start: 20090101, end: 20110325
  6. CYMBALTA [Concomitant]
     Indication: DEPRESSION
     Route: 048
  7. CLOBEX [Concomitant]
     Dates: start: 20101214
  8. REMICADE [Suspect]
     Indication: PSORIASIS
     Route: 042
     Dates: start: 20100101, end: 20101101
  9. TOPAMAX [Suspect]
     Indication: POST CONCUSSION SYNDROME
     Route: 048
     Dates: start: 20090101, end: 20110325
  10. ABILIFY [Concomitant]
     Indication: DEPRESSION
     Route: 048
     Dates: end: 20110324
  11. STELARA [Suspect]
     Indication: PSORIASIS
     Route: 058
     Dates: start: 20101201
  12. CYMBALTA [Concomitant]
     Indication: ANXIETY
     Route: 048
  13. ABILIFY [Concomitant]
     Indication: ANXIETY
     Route: 048
     Dates: end: 20110324
  14. METFORMIN HCL [Concomitant]
     Route: 048
     Dates: start: 20110414
  15. LEVOXYL [Concomitant]
     Indication: THYROID DISORDER
     Route: 048
  16. OXYCODONE HCL [Concomitant]
     Indication: PAIN
     Route: 048
     Dates: start: 20100101
  17. TRIAMCINOLONE ACETONIDE [Concomitant]
     Dates: start: 20101214
  18. TOPAMAX [Suspect]
     Indication: DEPRESSION
     Route: 048
     Dates: start: 20090101, end: 20110325
  19. XANAX [Concomitant]
     Indication: ANXIETY
     Route: 048
  20. HYDROMORPHONE HCL [Concomitant]
     Route: 048
     Dates: start: 20101005

REACTIONS (1)
  - PANCREATITIS [None]
